FAERS Safety Report 4921530-X (Version None)
Quarter: 2006Q1

REPORT INFORMATION
  Report Type: 
  Country: None (occurrence: None)
  Receive Date: 20060224
  Receipt Date: 20060202
  Transmission Date: 20060701
  Serious: Yes (Other)
  Sender: FDA-Public Use
  Company Number: PHNU2006DE00763

PATIENT
  Age: 68 Year
  Sex: Female
  Weight: 56.2 kg

DRUGS (5)
  1. ZOMETA [Suspect]
     Indication: METASTASES TO BONE
     Dosage: 4 MG, QMO
     Dates: start: 20050201
  2. DURAGESIC-100 [Suspect]
     Dosage: 200 UG, Q72H
     Route: 062
  3. HALOPERIDOL [Suspect]
     Indication: PAIN
     Dosage: 1.5 MG, QD
     Route: 065
     Dates: start: 20060101
  4. SAROTEN [Suspect]
     Indication: PAIN
     Dosage: 100 MG/DAY
     Route: 065
  5. NEURONTIN [Concomitant]
     Indication: PAIN
     Dosage: 1800 MG/DAY
     Route: 048

REACTIONS (6)
  - CONFUSIONAL STATE [None]
  - DEPRESSED LEVEL OF CONSCIOUSNESS [None]
  - PERSONALITY CHANGE [None]
  - SOMNOLENCE [None]
  - SPEECH DISORDER [None]
  - UNRESPONSIVE TO VERBAL STIMULI [None]
